FAERS Safety Report 8791332 (Version 1)
Quarter: 2012Q4

REPORT INFORMATION
  Report Type: Spontaneous
  Country: US (occurrence: None)
  Receive Date: 20120914
  Receipt Date: 20120914
  Transmission Date: 20130627
  Serious: Yes (Hospitalization)
  Sender: FDA-Public Use
  Company Number: None

PATIENT
  Age: 82 Year
  Sex: Male
  Weight: 7.71 kg

DRUGS (1)
  1. ACTIPREP PREOPERATIVE SKIN PREPARATION [Suspect]
     Dosage: prn to prep surgical field once top
     Route: 061
     Dates: start: 20120823, end: 20120823

REACTIONS (1)
  - Thermal burn [None]
